FAERS Safety Report 7044335-5 (Version None)
Quarter: 2010Q4

REPORT INFORMATION
  Report Type: 
  Country: None (occurrence: None)
  Receive Date: 20101014
  Receipt Date: 20101006
  Transmission Date: 20110411
  Serious: No
  Sender: FDA-Public Use
  Company Number: 2009BI019579

PATIENT
  Age: 52 Year
  Sex: Male

DRUGS (1)
  1. TYSABRI [Suspect]
     Indication: MULTIPLE SCLEROSIS
     Route: 042
     Dates: start: 20090202

REACTIONS (4)
  - CENTRAL VENOUS CATHETERISATION [None]
  - INFUSION SITE MASS [None]
  - MYALGIA [None]
  - POOR VENOUS ACCESS [None]
